FAERS Safety Report 12722256 (Version 2)
Quarter: 2016Q4

REPORT INFORMATION
  Report Type: Spontaneous
  Country: US (occurrence: US)
  Receive Date: 20160907
  Receipt Date: 20161020
  Transmission Date: 20170207
  Serious: Yes (Other)
  Sender: FDA-Public Use
  Company Number: US-PFIZER INC-2016413223

PATIENT
  Age: 49 Year
  Sex: Male
  Weight: 88.45 kg

DRUGS (1)
  1. PREPARATION H SUPPOSITORY [Suspect]
     Active Substance: COCOA BUTTER\PHENYLEPHRINE HYDROCHLORIDE
     Indication: PROCTALGIA
     Dosage: 1 DF, DAILY(INSERT ONE RECTALLY EVERY TIME USE THE RESTROOM)
     Dates: start: 201608

REACTIONS (6)
  - Condition aggravated [Not Recovered/Not Resolved]
  - Intentional product misuse [Unknown]
  - Rectal haemorrhage [Not Recovered/Not Resolved]
  - Pain [Unknown]
  - Poor quality drug administered [Unknown]
  - Product quality issue [Unknown]

NARRATIVE: CASE EVENT DATE: 201608
